FAERS Safety Report 7771043-5 (Version None)
Quarter: 2011Q3

REPORT INFORMATION
  Report Type: 
  Country: None (occurrence: None)
  Receive Date: 20110922
  Receipt Date: 20110331
  Transmission Date: 20111222
  Serious: No
  Sender: FDA-Public Use
  Company Number: US-ASTRAZENECA-2011SE18490

PATIENT
  Age: 62 Year
  Sex: Female
  Weight: 54.4 kg

DRUGS (4)
  1. SYNTHROID [Concomitant]
     Indication: THYROID DISORDER
  2. SEROQUEL [Suspect]
     Indication: BIPOLAR DISORDER
     Dosage: 200 MG DAILY AND 400 MG AT NIGHT
     Route: 048
     Dates: start: 20100801, end: 20110328
  3. BENZTROPINE MESYLATE [Concomitant]
     Indication: AKATHISIA
  4. PRAVASTATIN [Concomitant]
     Indication: HYPERCHOLESTEROLAEMIA

REACTIONS (6)
  - INSOMNIA [None]
  - FEELING JITTERY [None]
  - ANXIETY [None]
  - NERVOUSNESS [None]
  - TREMOR [None]
  - DRUG DOSE OMISSION [None]
